FAERS Safety Report 4883633-8 (Version None)
Quarter: 2006Q1

REPORT INFORMATION
  Report Type: 
  Country: None (occurrence: None)
  Receive Date: 20060118
  Receipt Date: 20051122
  Transmission Date: 20060701
  Serious: Yes (Hospitalization)
  Sender: FDA-Public Use
  Company Number: 2005CG01937

PATIENT
  Age: 52 Year
  Sex: Male
  Weight: 100 kg

DRUGS (9)
  1. MARCAINE [Suspect]
     Indication: ANALGESIC EFFECT
     Route: 053
     Dates: start: 20050623, end: 20050623
  2. DIPRIVAN [Suspect]
     Indication: GENERAL ANAESTHESIA
     Route: 042
     Dates: start: 20050623, end: 20050623
  3. CEFACIDAL [Suspect]
     Route: 042
     Dates: start: 20050623, end: 20050623
  4. DROLEPTAN [Suspect]
     Dates: start: 20050623, end: 20050623
  5. TRASYLOL [Suspect]
     Route: 042
     Dates: start: 20050623, end: 20050623
  6. MIDAZOLAM HCL [Suspect]
     Indication: GENERAL ANAESTHESIA
     Dates: start: 20050623, end: 20050623
  7. SUFENTANIL CITRATE [Suspect]
     Indication: GENERAL ANAESTHESIA
     Route: 042
     Dates: start: 20050623, end: 20050623
  8. CATAPRES [Suspect]
     Indication: ANALGESIC EFFECT
     Route: 053
     Dates: start: 20050623, end: 20050623
  9. PARACETAMOL [Concomitant]
     Dates: start: 20050623, end: 20050623

REACTIONS (2)
  - OEDEMA [None]
  - URTICARIA [None]
